FAERS Safety Report 9997529 (Version 1)
Quarter: 2014Q1

REPORT INFORMATION
  Report Type: Spontaneous
  Country: US (occurrence: US)
  Receive Date: 20140311
  Receipt Date: 20140311
  Transmission Date: 20141002
  Serious: No
  Sender: FDA-Public Use
  Company Number: US-GLAXOSMITHKLINE-A1055271A

PATIENT
  Age: 62 Year
  Sex: Female

DRUGS (1)
  1. NICORETTE FRESHMINT 2MG [Suspect]
     Indication: SMOKING CESSATION THERAPY
     Dosage: 2MG SINGLE DOSE
     Route: 002
     Dates: start: 20131231, end: 20131231

REACTIONS (9)
  - Oral discomfort [Recovered/Resolved]
  - Throat irritation [Recovered/Resolved]
  - Headache [Recovered/Resolved]
  - Chest pain [Recovered/Resolved]
  - Vomiting [Recovered/Resolved]
  - Malaise [Recovered/Resolved]
  - Nausea [Recovered/Resolved]
  - Eating disorder [Recovered/Resolved]
  - Dysgeusia [Recovered/Resolved]
